FAERS Safety Report 7320259-0 (Version None)
Quarter: 2011Q1

REPORT INFORMATION
  Report Type: 
  Country: None (occurrence: None)
  Receive Date: 20110228
  Receipt Date: 20110218
  Transmission Date: 20110831
  Serious: Yes (Life-Threatening, Other)
  Sender: FDA-Public Use
  Company Number: CH-ALLERGAN-1102420US

PATIENT
  Age: 89 Year
  Sex: Female

DRUGS (15)
  1. MULTAQ [Suspect]
     Indication: ATRIAL FIBRILLATION
     Dosage: 400 MG, BID
     Dates: start: 20110118, end: 20110128
  2. BELOC ZOK [Suspect]
     Indication: PRODUCT USED FOR UNKNOWN INDICATION
     Dosage: 25 MG, BID
     Route: 048
     Dates: end: 20110119
  3. NEO-MERCAZOLE TAB [Concomitant]
     Indication: PRODUCT USED FOR UNKNOWN INDICATION
     Dosage: 10 MG, TID
     Dates: start: 20110125
  4. TAMOXIFEN [Concomitant]
     Indication: PRODUCT USED FOR UNKNOWN INDICATION
     Dosage: 20 MG, QD
  5. COMBIGANA?, AUGENTROPFEN [Suspect]
     Indication: GLAUCOMA
     Dosage: 1 GTT, QD
     Route: 047
  6. TOREM [Concomitant]
     Indication: PRODUCT USED FOR UNKNOWN INDICATION
     Dosage: 5 MG, QD
     Dates: end: 20110118
  7. BELOC [Suspect]
     Indication: ATRIAL FIBRILLATION
     Dosage: 5 MG, BID
     Route: 040
     Dates: start: 20110118, end: 20110118
  8. ASPIRIN [Concomitant]
     Indication: PRODUCT USED FOR UNKNOWN INDICATION
     Dosage: 100 MG, QD
     Route: 048
     Dates: start: 20110118, end: 20110125
  9. CLEXANE [Concomitant]
     Indication: PRODUCT USED FOR UNKNOWN INDICATION
     Dosage: 40 MG, QD
     Route: 058
     Dates: start: 20110125
  10. DIGOXIN [Suspect]
     Indication: ATRIAL FIBRILLATION
     Dosage: 0.5 MG ADMINISTERED TWICE ON 20-JAN-2011 AND 0.25MG ADMINISTERED THREE TIMES ON 23-JAN-2011
     Route: 040
     Dates: start: 20110120, end: 20110123
  11. ATROPINE [Concomitant]
     Indication: PRODUCT USED FOR UNKNOWN INDICATION
     Dosage: 0.5 MG ADMINISTERED TWICE ON 20-JAN-2011 AND 0.25 MG ADMINISTERED THREE TIMES ON 23-JAN-2011
     Route: 040
     Dates: start: 20110120, end: 20110120
  12. DOBUTAMINE HCL [Concomitant]
     Indication: PRODUCT USED FOR UNKNOWN INDICATION
     Dosage: UNK
     Route: 040
     Dates: start: 20110120, end: 20110120
  13. CALCIMAGON 03 [Concomitant]
     Indication: PRODUCT USED FOR UNKNOWN INDICATION
     Dosage: 1000 ML, QD
  14. TIENAM [Concomitant]
     Indication: PRODUCT USED FOR UNKNOWN INDICATION
     Dosage: 500 MG, TID
     Route: 041
     Dates: start: 20110122
  15. COSOPT [Suspect]
     Indication: GLAUCOMA
     Dosage: 1 GTT, QD
     Route: 047
     Dates: end: 20110121

REACTIONS (2)
  - CARDIOGENIC SHOCK [None]
  - BRADYCARDIA [None]
